FAERS Safety Report 7634649-X (Version None)
Quarter: 2011Q3

REPORT INFORMATION
  Report Type: 
  Country: None (occurrence: None)
  Receive Date: 20110725
  Receipt Date: 20110623
  Transmission Date: 20111222
  Serious: Yes (Other)
  Sender: FDA-Public Use
  Company Number: FR-GENENTECH-320770

PATIENT
  Sex: Male

DRUGS (6)
  1. FLUORESCEIN SODIUM [Suspect]
     Indication: PRODUCT USED FOR UNKNOWN INDICATION
     Dosage: UNK UNK, UNKNOWN
     Route: 065
  2. LUCENTIS [Suspect]
     Dosage: UNK UNK, UNKNOWN
     Route: 031
     Dates: start: 20101119
  3. LUCENTIS [Suspect]
     Dosage: UNK UNK, UNKNOWN
     Route: 031
  4. LUCENTIS [Suspect]
     Dosage: UNK UNK, UNKNOWN
     Route: 031
  5. LUCENTIS [Suspect]
     Indication: AGE-RELATED MACULAR DEGENERATION
     Dosage: UNK UNK, UNKNOWN
     Route: 031
     Dates: start: 20090529
  6. VISUDYNE [Suspect]
     Indication: PRODUCT USED FOR UNKNOWN INDICATION
     Dosage: UNK UNK, UNKNOWN
     Route: 065

REACTIONS (1)
  - TOXIC SKIN ERUPTION [None]
